FAERS Safety Report 4882318-1 (Version None)
Quarter: 2006Q1

REPORT INFORMATION
  Report Type: 
  Country: None (occurrence: None)
  Receive Date: 20060112
  Receipt Date: 20060105
  Transmission Date: 20060701
  Serious: Yes (Hospitalization)
  Sender: FDA-Public Use
  Company Number: 2006-00052

PATIENT
  Age: 51 Year
  Sex: Female

DRUGS (6)
  1. MORPHINE SULFATE [Suspect]
     Indication: BACK PAIN
     Dosage: SEE IMAGE
     Route: 037
     Dates: start: 19950101, end: 20000601
  2. MORPHINE SULFATE [Suspect]
     Indication: BACK PAIN
     Dosage: SEE IMAGE
     Route: 037
     Dates: start: 20000601, end: 20010201
  3. MORPHINE SULFATE [Suspect]
     Indication: BACK PAIN
     Dosage: SEE IMAGE
     Route: 037
     Dates: start: 20010601
  4. CLONIDINE [Suspect]
     Indication: BACK PAIN
     Dosage: SEE IMAGE
     Route: 037
     Dates: start: 19950101, end: 20010201
  5. CLONIDINE [Suspect]
     Indication: BACK PAIN
     Dosage: SEE IMAGE
     Route: 037
     Dates: start: 20010601
  6. HYDROMORPHONE HCL [Concomitant]

REACTIONS (10)
  - BACK PAIN [None]
  - CATHETER RELATED COMPLICATION [None]
  - CONDITION AGGRAVATED [None]
  - DRUG INEFFECTIVE [None]
  - HEADACHE [None]
  - INTRACRANIAL HYPOTENSION [None]
  - NEUROLOGICAL COMPLICATION FROM DEVICE [None]
  - PIRIFORMIS SYNDROME [None]
  - POST PROCEDURAL COMPLICATION [None]
  - PYREXIA [None]
